FAERS Safety Report 4626531-7 (Version None)
Quarter: 2005Q1

REPORT INFORMATION
  Report Type: 
  Country: None (occurrence: None)
  Receive Date: 20050330
  Receipt Date: 20050310
  Transmission Date: 20050727
  Serious: No
  Sender: FDA-Public Use
  Company Number: US_0411107547

PATIENT
  Weight: 119 kg

DRUGS (1)
  1. ZYPREXA [Suspect]

REACTIONS (8)
  - BLOOD CHOLESTEROL ABNORMAL [None]
  - DIABETES MELLITUS [None]
  - HYPERINSULINISM [None]
  - HYPERTENSION [None]
  - OBESITY [None]
  - POLYTRAUMATISM [None]
  - RENAL DISORDER [None]
  - VISION BLURRED [None]
